FAERS Safety Report 6610670 (Version 15)
Quarter: 2012Q4

REPORT INFORMATION
  Report Type: 
  Country: US (occurrence: US)
  Receive Date: 20080410
  Receipt Date: 20121101
  Transmission Date: 20130627
  Serious: Yes (Death, Hospitalization, Other)
  Sender: FDA-Public Use
  Company Number: PHEH2008US03454

PATIENT
  Age: 50 Year
  Sex: Male
  Weight: 88.44 kg

DRUGS (9)
  1. ZOMETA [Suspect]
     Indication: OSTEOPOROSIS
     Dates: start: 200712, end: 200801
  2. BENICAR [Concomitant]
  3. LORTAB [Concomitant]
  4. VITAMIN B NOS [Concomitant]
  5. PERIDEX [Concomitant]
  6. FLAGYL [Concomitant]
  7. TAXOTERE [Concomitant]
  8. AVASTIN [Concomitant]
  9. FORADIL [Concomitant]

REACTIONS (43)
  - Death [Fatal]
  - Wound infection [Unknown]
  - Lung cancer metastatic [Unknown]
  - Second primary malignancy [Unknown]
  - Pulmonary oedema [Recovering/Resolving]
  - Pleural effusion [Not Recovered/Not Resolved]
  - Atelectasis [Not Recovered/Not Resolved]
  - Osteonecrosis of jaw [Unknown]
  - Pain [Unknown]
  - General physical health deterioration [Unknown]
  - Anxiety [Unknown]
  - Cardiomegaly [Unknown]
  - Pulmonary hypertension [Unknown]
  - Prostatomegaly [Unknown]
  - Pericardial effusion [Unknown]
  - Blood cholesterol increased [Unknown]
  - Exposed bone in jaw [Unknown]
  - Intervertebral disc protrusion [Unknown]
  - Vertebral foraminal stenosis [Unknown]
  - Back pain [Unknown]
  - Arthralgia [Unknown]
  - Anaemia [Unknown]
  - Dyspnoea exertional [Unknown]
  - Osteoarthritis [Unknown]
  - Chronic obstructive pulmonary disease [Unknown]
  - Emphysema [Unknown]
  - Bronchitis [Unknown]
  - Pulmonary embolism [Unknown]
  - Gastrooesophageal reflux disease [Unknown]
  - Acute coronary syndrome [Unknown]
  - Costochondritis [Unknown]
  - Metastases to lymph nodes [Unknown]
  - Diarrhoea [Unknown]
  - Red blood cell count decreased [Unknown]
  - Haemoglobin decreased [Unknown]
  - Abdominal pain [Unknown]
  - Fatigue [Unknown]
  - Pyrexia [Unknown]
  - Chills [Unknown]
  - Intervertebral disc degeneration [Unknown]
  - Pain in extremity [Unknown]
  - Haemangioma [Unknown]
  - Eye penetration [Unknown]
